FAERS Safety Report 14433797 (Version 5)
Quarter: 2018Q2

REPORT INFORMATION
  Report Type: Spontaneous
  Country: US (occurrence: US)
  Receive Date: 20180124
  Receipt Date: 20180418
  Transmission Date: 20180711
  Serious: Yes (Hospitalization, Other)
  Sender: FDA-Public Use
  Company Number: US-ACTELION-A-NJ2018-165880

PATIENT
  Age: 67 Year
  Sex: Male
  Weight: 71.57 kg

DRUGS (21)
  1. INSPRA [Concomitant]
     Active Substance: EPLERENONE
  2. MAGNESIUM [Concomitant]
     Active Substance: MAGNESIUM
  3. ASPIRIN. [Concomitant]
     Active Substance: ASPIRIN
  4. LIPITOR [Concomitant]
     Active Substance: ATORVASTATIN CALCIUM
  5. OXYGEN. [Concomitant]
     Active Substance: OXYGEN
     Route: 039
  6. VOLTAREN [Concomitant]
     Active Substance: DICLOFENAC SODIUM
  7. UPTRAVI [Suspect]
     Active Substance: SELEXIPAG
     Dosage: 1 TABLET, QD
     Route: 048
  8. UPTRAVI [Suspect]
     Active Substance: SELEXIPAG
     Dosage: 200 MCG, BID
     Route: 048
  9. NEUROTIN [Concomitant]
     Active Substance: GABAPENTIN
  10. BACTROBAN [Concomitant]
     Active Substance: MUPIROCIN\MUPIROCIN CALCIUM
  11. VALTREX [Concomitant]
     Active Substance: VALACYCLOVIR HYDROCHLORIDE
  12. KLONOPIN [Concomitant]
     Active Substance: CLONAZEPAM
  13. UPTRAVI [Suspect]
     Active Substance: SELEXIPAG
     Indication: PULMONARY ARTERIAL HYPERTENSION
     Dosage: 200 MCG, BID
     Route: 048
     Dates: start: 20171214
  14. NORCO [Concomitant]
     Active Substance: ACETAMINOPHEN\HYDROCODONE BITARTRATE
  15. SALINE [Concomitant]
     Active Substance: SODIUM CHLORIDE
  16. AMBRISENTAN [Suspect]
     Active Substance: AMBRISENTAN
     Indication: PULMONARY HYPERTENSION
     Dosage: 10 MG, QD
     Route: 048
     Dates: start: 20161004
  17. TEMOVATE [Concomitant]
     Active Substance: CLOBETASOL PROPIONATE
  18. PLAVIX [Concomitant]
     Active Substance: CLOPIDOGREL BISULFATE
  19. SODIUM CHLORIDE. [Concomitant]
     Active Substance: SODIUM CHLORIDE
  20. ADCIRCA [Concomitant]
     Active Substance: TADALAFIL
  21. NEXIUM [Concomitant]
     Active Substance: ESOMEPRAZOLE MAGNESIUM

REACTIONS (13)
  - Condition aggravated [Recovering/Resolving]
  - Oedema peripheral [Recovering/Resolving]
  - Pulmonary oedema [Recovered/Resolved]
  - Weight increased [Recovered/Resolved]
  - Myalgia [Unknown]
  - Cerebrovascular disorder [Unknown]
  - Device intolerance [Recovered/Resolved]
  - Fluid retention [Not Recovered/Not Resolved]
  - Nasal congestion [Unknown]
  - Cardiac failure congestive [Recovered/Resolved]
  - Right ventricular failure [Not Recovered/Not Resolved]
  - Pulmonary arterial hypertension [Not Recovered/Not Resolved]
  - Non-cardiac chest pain [Unknown]

NARRATIVE: CASE EVENT DATE: 201712
